FAERS Safety Report 7042077-3 (Version None)
Quarter: 2010Q4

REPORT INFORMATION
  Report Type: 
  Country: None (occurrence: None)
  Receive Date: 20101013
  Receipt Date: 20090908
  Transmission Date: 20110411
  Serious: No
  Sender: FDA-Public Use
  Company Number: US-ASTRAZENECA-2009SE12266

PATIENT
  Sex: Female
  Weight: 69.9 kg

DRUGS (3)
  1. SYMBICORT [Suspect]
     Indication: ASTHMA
     Dosage: 640 MCG
     Route: 055
     Dates: start: 20090825
  2. NEXIUM [Concomitant]
  3. ASPIRIN [Concomitant]

REACTIONS (2)
  - DEHYDRATION [None]
  - HEART RATE IRREGULAR [None]
